FAERS Safety Report 6005975-5 (Version None)
Quarter: 2008Q4

REPORT INFORMATION
  Report Type: 
  Country: None (occurrence: None)
  Receive Date: 20081217
  Receipt Date: 20081209
  Transmission Date: 20090506
  Serious: No
  Sender: FDA-Public Use
  Company Number: PHHY2008JP29568

PATIENT
  Sex: Female

DRUGS (3)
  1. TEGRETOL [Suspect]
     Indication: DEPRESSION
     Dosage: 200 MG DAILY
     Route: 048
     Dates: end: 20081202
  2. STEROIDS NOS [Suspect]
     Dosage: UNK
     Route: 048
     Dates: end: 20081202
  3. HORMONES NOS [Suspect]

REACTIONS (2)
  - IMPAIRED HEALING [None]
  - KELOID SCAR [None]
